FAERS Safety Report 8779671 (Version 1)
Quarter: 2012Q4

REPORT INFORMATION
  Report Type: 
  Country: US (occurrence: US)
  Receive Date: 20120912
  Receipt Date: 20120912
  Transmission Date: 20130627
  Serious: No
  Sender: FDA-Public Use
  Company Number: US-TEVA-351571USA

PATIENT
  Sex: Female

DRUGS (1)
  1. QNASL [Suspect]
     Dosage: 320 Microgram Daily;
     Route: 045

REACTIONS (2)
  - Nasal oedema [Not Recovered/Not Resolved]
  - Rhinitis [Not Recovered/Not Resolved]
